FAERS Safety Report 9965314 (Version 1)
Quarter: 2014Q1

REPORT INFORMATION
  Report Type: Report from Study
  Country: US (occurrence: US)
  Receive Date: 20140305
  Receipt Date: 20140305
  Transmission Date: 20141002
  Serious: No
  Sender: FDA-Public Use
  Company Number: US-ABBVIE-13P-163-1126277-00

PATIENT
  Age: 33 Year
  Sex: Female

DRUGS (3)
  1. HUMIRA [Suspect]
     Indication: COLITIS ULCERATIVE
     Dates: start: 20130426
  2. AMBIEN [Concomitant]
     Indication: INSOMNIA
     Dosage: 10 MG AT BEDTIME
  3. XANAX [Concomitant]
     Indication: ANXIETY

REACTIONS (2)
  - Nausea [Recovering/Resolving]
  - Flushing [Recovering/Resolving]
